FAERS Safety Report 6036509-7 (Version None)
Quarter: 2009Q1

REPORT INFORMATION
  Report Type: 
  Country: None (occurrence: None)
  Receive Date: 20090114
  Receipt Date: 20090108
  Transmission Date: 20090719
  Serious: Yes (Hospitalization)
  Sender: FDA-Public Use
  Company Number: ES-BAXTER-2009BH000251

PATIENT
  Age: 63 Year
  Sex: Female

DRUGS (4)
  1. ENDOXAN BAXTER [Suspect]
     Indication: BREAST CANCER
     Dosage: 5? CICLO
     Route: 042
     Dates: start: 20081107, end: 20081107
  2. FARMORUBICINA [Interacting]
     Indication: BREAST CANCER
     Dosage: 5? CICLO
     Route: 042
     Dates: start: 20081107, end: 20081107
  3. FLUOROURACIL [Interacting]
     Indication: BREAST CANCER
     Dosage: 5? CICLO
     Route: 042
     Dates: start: 20081107, end: 20081107
  4. NEUPOGEN [Concomitant]
     Indication: COLONY STIMULATING FACTOR PROPHYLAXIS
     Route: 058
     Dates: start: 20081108, end: 20081112

REACTIONS (5)
  - DIARRHOEA [None]
  - LIVER INJURY [None]
  - OCULAR ICTERUS [None]
  - PANCYTOPENIA [None]
  - PYREXIA [None]
